FAERS Safety Report 8391927 (Version 4)
Quarter: 2013Q1

REPORT INFORMATION
  Report Type: Spontaneous
  Country: US (occurrence: US)
  Receive Date: 20120206
  Receipt Date: 20130219
  Transmission Date: 20140127
  Serious: Yes (Hospitalization)
  Sender: FDA-Public Use
  Company Number: US-PFIZER INC-2012029025

PATIENT
  Age: 69 Year
  Sex: Male
  Weight: 93.42 kg

DRUGS (9)
  1. LYRICA [Suspect]
     Indication: NEUROPATHY PERIPHERAL
     Dosage: 150 MG, 2X/DAY
     Route: 048
     Dates: start: 2009
  2. LYRICA [Suspect]
     Dosage: 300 MG, 2X/DAY
     Route: 048
  3. PERCOCET [Concomitant]
     Indication: PAIN
     Dosage: 325/5 MG, 2X/DAY
  4. ATENOLOL [Concomitant]
     Indication: ATRIAL FIBRILLATION
     Dosage: 25 MG, UNK
  5. ASPIRIN [Concomitant]
     Dosage: 325 MG, UNK
  6. OMEPRAZOLE [Concomitant]
     Indication: DYSPEPSIA
     Dosage: UNK
  7. BACLOFEN [Concomitant]
     Indication: MUSCLE SPASMS
     Dosage: 20 MG, 2X/DAY
  8. BACLOFEN [Concomitant]
     Indication: MUSCLE SPASMS
  9. LORATADINE [Concomitant]
     Dosage: 10 MG, 1X/DAY

REACTIONS (1)
  - Arthropathy [Unknown]
